FAERS Safety Report 4334708-3 (Version None)
Quarter: 2004Q2

REPORT INFORMATION
  Report Type: 
  Country: None (occurrence: None)
  Receive Date: 20040405
  Receipt Date: 20040324
  Transmission Date: 20050107
  Serious: Yes (Other)
  Sender: FDA-Public Use
  Company Number: US-JNJFOC-20040300768

PATIENT
  Age: 51 Year
  Sex: Female
  Weight: 133.3575 kg

DRUGS (20)
  1. REMICADE [Suspect]
     Indication: RHEUMATOID ARTHRITIS
     Dosage: 10 MG/KG, INTRAVENOUS
     Route: 042
     Dates: start: 20010730, end: 20010730
  2. REMICADE [Suspect]
     Indication: RHEUMATOID ARTHRITIS
     Dosage: 10 MG/KG, INTRAVENOUS
     Route: 042
     Dates: start: 20040120, end: 20040120
  3. METHOTREXATE [Suspect]
     Dosage: 7.5 MG, 1 IN 7 WEEK
     Dates: start: 20020101
  4. MULTIPLEVITAMINS (MUTLIVITAMINS) [Concomitant]
  5. HUMULIN (NOVOLIN 20/80) [Concomitant]
  6. HUMALOG [Concomitant]
  7. GUANFACINE HCL [Concomitant]
  8. METFORMIN HCL [Concomitant]
  9. GLYBURIDE [Concomitant]
  10. PREMARIN [Concomitant]
  11. FOLIC ACID [Concomitant]
  12. TRICOR [Concomitant]
  13. ALLOPURINOL [Concomitant]
  14. CELEBREX [Concomitant]
  15. LIPITOR [Concomitant]
  16. MAVIK [Concomitant]
  17. VITAMIN E [Concomitant]
  18. STOOL SOFTEN (DOCUSATE SODIUM) [Concomitant]
  19. ACTAMINOPHEN (PARACETAMOL) [Concomitant]
  20. ASPIRIN [Concomitant]

REACTIONS (11)
  - ANAEMIA OF CHRONIC DISEASE [None]
  - B-CELL LYMPHOMA STAGE II [None]
  - BREAST MASS [None]
  - CHEST WALL PAIN [None]
  - CONSTIPATION [None]
  - DYSPHAGIA [None]
  - FEELING COLD [None]
  - GOITRE [None]
  - HEADACHE [None]
  - HOT FLUSH [None]
  - LYMPHADENOPATHY [None]
